FAERS Safety Report 18022564 (Version 1)
Quarter: 2020Q3

REPORT INFORMATION
  Report Type: Spontaneous
  Country: HR (occurrence: HR)
  Receive Date: 20200715
  Receipt Date: 20200715
  Transmission Date: 20201103
  Serious: Yes (Hospitalization)
  Sender: FDA-Public Use
  Company Number: HR-ACCORD-189838

PATIENT
  Age: 79 Year
  Sex: Male

DRUGS (10)
  1. KALINOR [Concomitant]
     Dosage: DF? 2.17 G OF POTASSIUM CITRATE, 2.00 G OF POTASSIUM BICARBONATE AND 2.057 G OF CITRIC ACID,
     Route: 048
  2. DOCETAXEL. [Suspect]
     Active Substance: DOCETAXEL
     Indication: PROSTATE CANCER
     Dosage: CUMULATIVE DOSE: 3 CYCLICAL
     Route: 042
     Dates: start: 202004, end: 202005
  3. LASIX [Concomitant]
     Active Substance: FUROSEMIDE
     Route: 048
     Dates: start: 20200517
  4. CONTROLOC [Concomitant]
     Active Substance: PANTOPRAZOLE SODIUM
     Indication: ABDOMINAL PAIN UPPER
     Route: 048
     Dates: start: 2020
  5. PRAZINE [Concomitant]
     Route: 048
  6. TOUJEO [Concomitant]
     Active Substance: INSULIN GLARGINE
     Indication: DIABETES MELLITUS
     Dosage: 20TH NV
     Route: 058
     Dates: start: 2014
  7. FLOSIN [Concomitant]
     Active Substance: TAMSULOSIN
     Route: 048
  8. HUMALOG [Concomitant]
     Active Substance: INSULIN LISPRO
     Indication: DIABETES MELLITUS
     Dosage: 3 X 8 IU
     Route: 058
  9. LIPERTANCE [Concomitant]
     Dosage: 20 MG ATORVASTATIN, 10 MG PERINDOPRIL ARGININE AND 5 MG AMLODIPINE
     Route: 048
  10. ANDOL PRO [Concomitant]
     Route: 048

REACTIONS (9)
  - Hypoglycaemia [Unknown]
  - Vertigo [Unknown]
  - Peripheral swelling [Unknown]
  - Thirst [Unknown]
  - Decreased appetite [Unknown]
  - Nocturnal dyspnoea [Unknown]
  - Cardiac failure [Recovering/Resolving]
  - Dermatitis bullous [Recovering/Resolving]
  - Vomiting [Unknown]

NARRATIVE: CASE EVENT DATE: 2020
